FAERS Safety Report 24847775 (Version 1)
Quarter: 2025Q1

REPORT INFORMATION
  Report Type: Spontaneous
  Country: AU (occurrence: AU)
  Receive Date: 20250116
  Receipt Date: 20250116
  Transmission Date: 20250408
  Serious: Yes (Other)
  Sender: NOVO NORDISK
  Company Number: None

PATIENT
  Age: 51 Year
  Sex: Male

DRUGS (3)
  1. OZEMPIC [Suspect]
     Active Substance: SEMAGLUTIDE
     Indication: Weight control
     Dates: start: 2024
  2. PREGABALIN [Concomitant]
     Active Substance: PREGABALIN
     Indication: Product use in unapproved indication
  3. SUBLOCADE [Concomitant]
     Active Substance: BUPRENORPHINE
     Indication: Drug dependence

REACTIONS (5)
  - Suicidal ideation [Recovering/Resolving]
  - Disturbance in attention [Recovering/Resolving]
  - Anhedonia [Recovered/Resolved]
  - Depressed mood [Recovering/Resolving]
  - Product use issue [Recovered/Resolved]

NARRATIVE: CASE EVENT DATE: 20240101
